FAERS Safety Report 5386450-8 (Version None)
Quarter: 2007Q3

REPORT INFORMATION
  Report Type: 
  Country: None (occurrence: None)
  Receive Date: 20070713
  Receipt Date: 20070710
  Transmission Date: 20080115
  Serious: Yes (Other)
  Sender: FDA-Public Use
  Company Number: US-ASTRAZENECA-2007UW16135

PATIENT
  Age: 58 Year
  Sex: Male

DRUGS (2)
  1. SEROQUEL [Suspect]
     Indication: DEMENTIA ALZHEIMER'S TYPE
     Route: 048
  2. MULTIPLE MEDICATIONS FOR ALZHEIMER'S DISEASE [Concomitant]

REACTIONS (1)
  - SUICIDAL IDEATION [None]
